FAERS Safety Report 21613021 (Version 4)
Quarter: 2023Q4

REPORT INFORMATION
  Report Type: Report from Study
  Country: US (occurrence: US)
  Receive Date: 20221118
  Receipt Date: 20231113
  Transmission Date: 20240109
  Serious: Yes (Other)
  Sender: FDA-Public Use
  Company Number: US-002147023-NVSC2022US256330

PATIENT
  Sex: Male

DRUGS (1)
  1. KESIMPTA [Suspect]
     Active Substance: OFATUMUMAB
     Indication: Product used for unknown indication
     Dosage: 20 MG, QMO (ROUTE: SENSOREADY PEN)
     Route: 058

REACTIONS (13)
  - Seizure [Unknown]
  - General physical health deterioration [Unknown]
  - Asthenia [Unknown]
  - Gait disturbance [Unknown]
  - Dysarthria [Unknown]
  - Balance disorder [Unknown]
  - Fine motor skill dysfunction [Unknown]
  - Cognitive disorder [Unknown]
  - Needle issue [Unknown]
  - Drug dose omission by device [Unknown]
  - Drug ineffective [Unknown]
  - Feeling abnormal [Unknown]
  - Inappropriate schedule of product administration [Unknown]
